FAERS Safety Report 8027280-8 (Version None)
Quarter: 2012Q1

REPORT INFORMATION
  Report Type: 
  Country: None (occurrence: None)
  Receive Date: 20120105
  Receipt Date: 20120105
  Transmission Date: 20120608
  Serious: Yes (Hospitalization)
  Sender: FDA-Public Use
  Company Number: None

PATIENT
  Age: 69 Year
  Sex: Female
  Weight: 55.7 kg

DRUGS (5)
  1. BEVACIZUMAB [Suspect]
     Indication: METASTATIC MALIGNANT MELANOMA
     Dosage: 15 MG/KG Q3W, IV
     Route: 042
     Dates: start: 20111024
  2. PRILOSEC [Concomitant]
  3. IPILIMUMAB [Suspect]
     Indication: METASTATIC MALIGNANT MELANOMA
     Dosage: 3 MG/KG Q3W, Q3M IV
     Route: 042
     Dates: start: 20111024, end: 20111229
  4. ATIVAN [Concomitant]
  5. MULTI-VITAMIN [Concomitant]

REACTIONS (4)
  - RECTAL HAEMORRHAGE [None]
  - SKIN EROSION [None]
  - HAEMORRHOIDS [None]
  - DYSPNOEA EXERTIONAL [None]
